FAERS Safety Report 13563000 (Version 1)
Quarter: 2017Q2

REPORT INFORMATION
  Report Type: Report from Study
  Country: ZA (occurrence: ZA)
  Receive Date: 20170519
  Receipt Date: 20170519
  Transmission Date: 20170830
  Serious: Yes (Death)
  Sender: FDA-Public Use
  Company Number: PHHY2017ZA068245

PATIENT
  Age: 79 Year
  Sex: Male

DRUGS (2)
  1. FORVENT [Concomitant]
     Indication: ASTHMA
     Dosage: 18 UG, UNK
     Route: 048
     Dates: start: 20161125
  2. INDAPAMIDE SANDOZ [Suspect]
     Active Substance: INDAPAMIDE
     Indication: DIURETIC THERAPY
     Dosage: 2.5 MG, UNK
     Route: 048
     Dates: start: 20161125

REACTIONS (1)
  - Death [Fatal]

NARRATIVE: CASE EVENT DATE: 20170505
